FAERS Safety Report 4807158-0 (Version None)
Quarter: 2005Q4

REPORT INFORMATION
  Report Type: 
  Country: None (occurrence: None)
  Receive Date: 20051020
  Receipt Date: 20051010
  Transmission Date: 20060501
  Serious: Yes (Death)
  Sender: FDA-Public Use
  Company Number: CERZ-10997

PATIENT
  Age: 13 Year
  Sex: Female
  Weight: 34 kg

DRUGS (5)
  1. CEREZYME [Suspect]
     Indication: GAUCHER'S DISEASE
     Dosage: 95 U/KG IV
     Route: 042
     Dates: end: 20050717
  2. CEREZYME [Suspect]
     Indication: GAUCHER'S DISEASE
     Dosage: 75 U/KG IV
     Route: 042
     Dates: start: 20040101
  3. CEREZYME [Suspect]
     Indication: GAUCHER'S DISEASE
     Dosage: 30 U/KG IV
     Route: 042
     Dates: start: 19980801, end: 20030101
  4. VALPROATE MAGNESIUM [Concomitant]
  5. CEREZYME [Suspect]
     Indication: GAUCHER'S DISEASE
     Dosage: 60 U/KG IV
     Route: 042
     Dates: start: 20030101, end: 20040101

REACTIONS (6)
  - ANOREXIA [None]
  - CARDIO-RESPIRATORY ARREST [None]
  - CONVULSION [None]
  - GASTROSTOMY TUBE INSERTION [None]
  - MALNUTRITION [None]
  - PNEUMONIA [None]
